FAERS Safety Report 4641040-7 (Version None)
Quarter: 2005Q2

REPORT INFORMATION
  Report Type: 
  Country: None (occurrence: None)
  Receive Date: 20050419
  Receipt Date: 20050419
  Transmission Date: 20051028
  Serious: Yes (Other)
  Sender: FDA-Public Use
  Company Number: None

PATIENT
  Sex: Male

DRUGS (1)
  1. CLOZAPINE [Suspect]
     Dosage: 400 MG QHS

REACTIONS (4)
  - ABNORMAL BEHAVIOUR [None]
  - DECREASED ACTIVITY [None]
  - IMPAIRED SELF-CARE [None]
  - PARANOIA [None]
